FAERS Safety Report 4994765-8 (Version None)
Quarter: 2006Q1

REPORT INFORMATION
  Report Type: 
  Country: None (occurrence: None)
  Receive Date: 20060313
  Receipt Date: 20050622
  Transmission Date: 20060701
  Serious: Yes (Hospitalization)
  Sender: FDA-Public Use
  Company Number: PHEH2005US06635

PATIENT
  Age: 63 Year
  Sex: Female

DRUGS (24)
  1. TRILEPTAL [Suspect]
     Indication: NEURALGIA
     Dosage: 300 MG,BID,ORAL
     Route: 048
  2. VISTARIL (HYDROXYZINE HYDROCHLORIDE) [Concomitant]
  3. METOCLOPRAMIDE HYDROCHLORIDE [Concomitant]
  4. CLONIDINE [Concomitant]
  5. CARTIA XT [Concomitant]
  6. ESTRATEST [Concomitant]
  7. DIGOXIN [Concomitant]
  8. SYNTHROID [Concomitant]
  9. PREVACID [Concomitant]
  10. NEURONTIN [Concomitant]
  11. ATIVAN [Concomitant]
  12. MS CONTIN [Concomitant]
  13. PERCODAN (ACETYLSALICYLIC ACID, CAFFEINE, HOMATROPINE TEREPHTHALATE, O [Concomitant]
  14. KLOR-CON [Concomitant]
  15. URISPAS [Concomitant]
  16. DEMADEX [Concomitant]
  17. FLONASE (FLUTICASONE PROPIONATE, SALMETEROL XINAFOATE) [Concomitant]
  18. ADVAIR DISKUS 100/50 [Concomitant]
  19. ALBUTEROL [Concomitant]
  20. CLARITIN-D [Concomitant]
  21. AMBIEN [Concomitant]
  22. LACTULOSE [Concomitant]
  23. MOBIC [Concomitant]
  24. LEVAQUIN [Concomitant]

REACTIONS (2)
  - ENCEPHALOPATHY [None]
  - HYPONATRAEMIA [None]
